FAERS Safety Report 24785255 (Version 1)
Quarter: 2024Q4

REPORT INFORMATION
  Report Type: Spontaneous
  Country: US (occurrence: US)
  Receive Date: 20241228
  Receipt Date: 20241228
  Transmission Date: 20250115
  Serious: Yes (Other)
  Sender: AMGEN
  Company Number: US-AMGEN-USASP2024252210

PATIENT

DRUGS (4)
  1. PREDNISONE [Suspect]
     Active Substance: PREDNISONE
     Indication: Inflammatory bowel disease
     Dosage: UNK
     Route: 065
  2. INFLIXIMAB [Suspect]
     Active Substance: INFLIXIMAB
     Indication: Uveitis
     Dosage: UNK
     Route: 065
  3. ETANERCEPT [Suspect]
     Active Substance: ETANERCEPT
     Indication: Spondyloarthropathy
     Dosage: UNK
     Route: 065
  4. ADALIMUMAB [Suspect]
     Active Substance: ADALIMUMAB
     Indication: Spondyloarthropathy
     Dosage: UNK
     Route: 065

REACTIONS (6)
  - Scleritis [Unknown]
  - Ulcerative keratitis [Unknown]
  - Uveitis [Unknown]
  - Iridocyclitis [Unknown]
  - Chorioretinitis [Unknown]
  - Serpiginous choroiditis [Unknown]
